FAERS Safety Report 23562313 (Version 1)
Quarter: 2024Q1

REPORT INFORMATION
  Report Type: Spontaneous
  Country: US (occurrence: None)
  Receive Date: 20240226
  Receipt Date: 20240226
  Transmission Date: 20240410
  Serious: No
  Sender: FDA-Public Use
  Company Number: 2024A040876

PATIENT

DRUGS (1)
  1. TEZSPIRE [Suspect]
     Active Substance: TEZEPELUMAB-EKKO
     Dosage: UNKNOWN

REACTIONS (13)
  - Pruritus [Unknown]
  - Erythema [Unknown]
  - Scratch [Unknown]
  - Abdominal pain [Unknown]
  - Gastritis [Unknown]
  - Tachycardia [Unknown]
  - Productive cough [Unknown]
  - Respiratory tract infection [Unknown]
  - Dyspnoea [Unknown]
  - Headache [Unknown]
  - Nausea [Unknown]
  - Wheezing [Unknown]
  - Decreased appetite [Unknown]
